FAERS Safety Report 10136880 (Version 1)
Quarter: 2014Q2

REPORT INFORMATION
  Report Type: Spontaneous
  Country: US (occurrence: US)
  Receive Date: 20140429
  Receipt Date: 20140429
  Transmission Date: 20141212
  Serious: No
  Sender: FDA-Public Use
  Company Number: US-ABBVIE-14P-163-1217549-00

PATIENT
  Age: 45 Year
  Sex: Male

DRUGS (1)
  1. ANDROGEL [Suspect]
     Indication: HYPOGONADISM
     Route: 061
     Dates: start: 201307

REACTIONS (1)
  - Sperm concentration decreased [Not Recovered/Not Resolved]
